FAERS Safety Report 7699019-7 (Version None)
Quarter: 2011Q3

REPORT INFORMATION
  Report Type: 
  Country: None (occurrence: None)
  Receive Date: 20110819
  Receipt Date: 20110812
  Transmission Date: 20111222
  Serious: Yes (Other)
  Sender: FDA-Public Use
  Company Number: US-ROCHE-778624

PATIENT
  Sex: Female
  Weight: 43.1 kg

DRUGS (2)
  1. ADVIL LIQUI-GELS [Concomitant]
  2. ACCUTANE [Suspect]
     Indication: ACNE
     Route: 065
     Dates: start: 19820101, end: 19830101

REACTIONS (4)
  - INFLAMMATORY BOWEL DISEASE [None]
  - ANXIETY [None]
  - COLITIS ULCERATIVE [None]
  - HAEMORRHOIDS [None]
